FAERS Safety Report 18596702 (Version 2)
Quarter: 2020Q4

REPORT INFORMATION
  Report Type: Spontaneous
  Country: ES (occurrence: ES)
  Receive Date: 20201209
  Receipt Date: 20201211
  Transmission Date: 20210114
  Serious: Yes (Other)
  Sender: FDA-Public Use
  Company Number: ES-TEVA-2020-ES-1857605

PATIENT
  Age: 64 Year

DRUGS (14)
  1. RITUXIMAB. [Suspect]
     Active Substance: RITUXIMAB
     Dosage: (4 DOSES)
     Route: 065
     Dates: start: 201605, end: 201805
  2. RITUXIMAB. [Suspect]
     Active Substance: RITUXIMAB
     Dosage: (8 DOSES: ONE EVERY 2-3 MONTHS)
     Route: 065
     Dates: start: 201104, end: 201212
  3. GEMCITABINE. [Suspect]
     Active Substance: GEMCITABINE
     Indication: DIFFUSE LARGE B-CELL LYMPHOMA
     Route: 065
     Dates: start: 20200701
  4. RITUXIMAB. [Suspect]
     Active Substance: RITUXIMAB
     Route: 065
     Dates: start: 202007
  5. RITUXIMAB. [Suspect]
     Active Substance: RITUXIMAB
     Route: 065
     Dates: start: 201910
  6. CYCLOPHOSPHAMIDE. [Suspect]
     Active Substance: CYCLOPHOSPHAMIDE
     Indication: B-CELL LYMPHOMA
     Route: 065
     Dates: start: 2002
  7. RITUXIMAB. [Suspect]
     Active Substance: RITUXIMAB
     Indication: B-CELL LYMPHOMA
     Dosage: (4 DOSES EVERY 6 MONTHS)
     Route: 065
     Dates: start: 200308, end: 200511
  8. BENDAMUSTINE HYDROCHLORIDE. [Suspect]
     Active Substance: BENDAMUSTINE HYDROCHLORIDE
     Indication: B-CELL LYMPHOMA
     Route: 042
     Dates: start: 201910
  9. VINCRISTINE [Suspect]
     Active Substance: VINCRISTINE
     Indication: B-CELL LYMPHOMA
     Route: 065
     Dates: start: 2002
  10. OXALIPLATIN. [Suspect]
     Active Substance: OXALIPLATIN
     Indication: DIFFUSE LARGE B-CELL LYMPHOMA
     Route: 065
     Dates: start: 20200701
  11. RITUXIMAB. [Suspect]
     Active Substance: RITUXIMAB
     Dosage: (4 DOSES EVERY 6 MONTHS)
     Route: 065
     Dates: start: 2007, end: 2011
  12. PREDNISONE. [Suspect]
     Active Substance: PREDNISONE
     Indication: B-CELL LYMPHOMA
     Route: 065
     Dates: start: 2002
  13. RITUXIMAB. [Suspect]
     Active Substance: RITUXIMAB
     Indication: DIFFUSE LARGE B-CELL LYMPHOMA
     Dosage: (4 DOSES X 6 CYCLES)
     Route: 065
     Dates: start: 2002
  14. DOXORUBICIN [Suspect]
     Active Substance: DOXORUBICIN
     Indication: B-CELL LYMPHOMA
     Route: 065
     Dates: start: 2002

REACTIONS (6)
  - Pneumonia [Unknown]
  - Campylobacter gastroenteritis [Unknown]
  - General physical health deterioration [Unknown]
  - Bronchiectasis [Unknown]
  - Ill-defined disorder [Unknown]
  - Weight decreased [Unknown]
